FAERS Safety Report 5198921-8 (Version None)
Quarter: 2007Q1

REPORT INFORMATION
  Report Type: 
  Country: None (occurrence: None)
  Receive Date: 20070104
  Receipt Date: 20061222
  Transmission Date: 20070707
  Serious: Yes (Hospitalization)
  Sender: FDA-Public Use
  Company Number: US-BRISTOL-MYERS SQUIBB COMPANY-13623392

PATIENT
  Age: 48 Year
  Sex: Male

DRUGS (12)
  1. ENTECAVIR [Suspect]
     Indication: HEPATITIS B
     Route: 048
     Dates: start: 20050322
  2. PROPRANOLOL [Concomitant]
     Indication: VARICES OESOPHAGEAL
     Dates: start: 19990301
  3. PANTOPRAZOLE SODIUM [Concomitant]
     Indication: DYSPEPSIA
     Dates: start: 20020901
  4. IBUPROFEN [Concomitant]
     Indication: PAIN IN EXTREMITY
     Dates: start: 20020101, end: 20061208
  5. FUROSEMIDE [Concomitant]
     Indication: ASCITES
     Route: 048
     Dates: start: 20050712, end: 20061208
  6. FUROSEMIDE [Concomitant]
     Indication: OEDEMA PERIPHERAL
     Route: 048
     Dates: start: 20050712, end: 20061208
  7. AMILORIDE HYDROCHLORIDE [Concomitant]
     Indication: VARICES OESOPHAGEAL
     Route: 048
     Dates: start: 20050712
  8. CIPROFLOXACIN [Concomitant]
     Indication: PYREXIA
     Route: 048
     Dates: start: 20051215, end: 20061208
  9. IRON SULFATETHIAMIN COMPOUND TAB [Concomitant]
     Indication: ANAEMIA
     Route: 048
     Dates: start: 20060508, end: 20061208
  10. ALDACTONE [Concomitant]
     Indication: ASCITES
     Route: 048
     Dates: start: 20061208
  11. OXYCONTIN [Concomitant]
     Indication: MYALGIA
     Route: 048
     Dates: start: 20061208
  12. OXY-IR [Concomitant]
     Indication: MYALGIA
     Dates: start: 20061208

REACTIONS (1)
  - STREPTOCOCCAL SEPSIS [None]
